FAERS Safety Report 4436535-5 (Version None)
Quarter: 2004Q3

REPORT INFORMATION
  Report Type: 
  Country: None (occurrence: None)
  Receive Date: 20040830
  Receipt Date: 20040614
  Transmission Date: 20050211
  Serious: No
  Sender: FDA-Public Use
  Company Number: US-BRISTOL-MYERS SQUIBB COMPANY-12615134

PATIENT
  Age: 47 Year
  Sex: Male
  Weight: 73 kg

DRUGS (8)
  1. ABILIFY [Suspect]
     Indication: PSYCHOTIC DISORDER
     Route: 048
     Dates: start: 20040604, end: 20040608
  2. ABILIFY [Suspect]
     Indication: SCHIZOPHRENIA
     Route: 048
     Dates: start: 20040604, end: 20040608
  3. METHOCARBAMOL [Concomitant]
  4. KLONOPIN [Concomitant]
  5. CODEINE SULFATE [Concomitant]
  6. IBUPROFEN SR [Concomitant]
  7. BENADRYL [Concomitant]
  8. MUSCLE RELAXANT [Concomitant]

REACTIONS (3)
  - CHEST PAIN [None]
  - DYSPHAGIA [None]
  - MYALGIA [None]
